FAERS Safety Report 9850767 (Version 3)
Quarter: 2014Q2

REPORT INFORMATION
  Report Type: Spontaneous
  Country: DE (occurrence: DE)
  Receive Date: 20140128
  Receipt Date: 20140411
  Transmission Date: 20141212
  Serious: Yes (Death)
  Sender: FDA-Public Use
  Company Number: DE-TEVA-458836GER

PATIENT
  Age: 79 Year
  Sex: Male
  Weight: 80 kg

DRUGS (2)
  1. AMOXCLAV 500/125 MG [Suspect]
     Indication: PNEUMONIA
     Dosage: 6 DOSAGE FORMS DAILY; 1 DOSAGE FORM CONTAINS AMOXICILLIN 500MG AND CLAVULANIC ACID 125MG
     Route: 048
     Dates: start: 20140118, end: 20140119
  2. KLACID 250 MG [Concomitant]
     Indication: PNEUMONIA
     Dosage: 500 MILLIGRAM DAILY;
     Route: 048
     Dates: start: 20140118, end: 20140119

REACTIONS (2)
  - Acute hepatic failure [Fatal]
  - Renal failure acute [Fatal]
